FAERS Safety Report 18064505 (Version 1)
Quarter: 2020Q3

REPORT INFORMATION
  Report Type: Spontaneous
  Country: US (occurrence: US)
  Receive Date: 20200723
  Receipt Date: 20200723
  Transmission Date: 20201103
  Serious: Yes (Hospitalization)
  Sender: FDA-Public Use
  Company Number: None

PATIENT
  Age: 74 Year
  Sex: Female

DRUGS (10)
  1. SILDENAFIL. [Concomitant]
     Active Substance: SILDENAFIL
  2. POTASSIUM CHLORIDE. [Concomitant]
     Active Substance: POTASSIUM CHLORIDE
  3. METOLAZONE. [Concomitant]
     Active Substance: METOLAZONE
  4. TYVASO [Concomitant]
     Active Substance: TREPROSTINIL
  5. BISOPROLOL [Concomitant]
     Active Substance: BISOPROLOL
  6. OXYGEN. [Concomitant]
     Active Substance: OXYGEN
  7. AMBRISENTAN 10MG TABLETS 30/BO: 10MG [Suspect]
     Active Substance: AMBRISENTAN
     Indication: PULMONARY ARTERIAL HYPERTENSION
     Route: 048
     Dates: start: 201903
  8. FUROSEMIDE. [Concomitant]
     Active Substance: FUROSEMIDE
  9. LORAZEPAM. [Concomitant]
     Active Substance: LORAZEPAM
  10. ALBUTEROL NEB SOLN [Concomitant]

REACTIONS (1)
  - Generalised oedema [None]

NARRATIVE: CASE EVENT DATE: 20200719
